FAERS Safety Report 5239995-5 (Version None)
Quarter: 2007Q1

REPORT INFORMATION
  Report Type: 
  Country: None (occurrence: None)
  Receive Date: 20070216
  Receipt Date: 20070205
  Transmission Date: 20070707
  Serious: Yes (Other)
  Sender: FDA-Public Use
  Company Number: FR-PFIZER INC-2007004425

PATIENT
  Sex: Female
  Weight: 110 kg

DRUGS (5)
  1. LYRICA [Suspect]
     Indication: CAUDA EQUINA SYNDROME
     Route: 048
     Dates: start: 20060901, end: 20061201
  2. MORPHINE SULFATE [Concomitant]
     Route: 048
  3. CLONAZEPAM [Concomitant]
     Route: 048
     Dates: start: 20040101
  4. GABAPENTIN [Concomitant]
     Route: 048
     Dates: start: 20040101, end: 20060901
  5. MACROGOL [Concomitant]
     Route: 048
     Dates: start: 20040101

REACTIONS (2)
  - COMPULSIONS [None]
  - WEIGHT INCREASED [None]
